FAERS Safety Report 24612278 (Version 4)
Quarter: 2024Q4

REPORT INFORMATION
  Report Type: Spontaneous
  Country: CA (occurrence: CA)
  Receive Date: 20241113
  Receipt Date: 20241204
  Transmission Date: 20250115
  Serious: Yes (Death, Hospitalization, Other)
  Sender: CELLTRION
  Company Number: CA-PFIZER INC-202400182437

PATIENT

DRUGS (21)
  1. INFLECTRA [Suspect]
     Active Substance: INFLIXIMAB-DYYB
     Indication: Crohn^s disease
     Dosage: 5 MG/KG, EVERY 6 WEEK
     Route: 042
     Dates: start: 20230711
  2. INFLECTRA [Suspect]
     Active Substance: INFLIXIMAB-DYYB
     Dosage: 5 MG/KG, EVERY 6 WEEK
     Route: 042
     Dates: start: 20240423
  3. INFLECTRA [Suspect]
     Active Substance: INFLIXIMAB-DYYB
     Dosage: 5 MG/KG, EVERY 6 WEEK (402 MG, 6 WEEKS)
     Route: 042
     Dates: start: 20240530
  4. INFLECTRA [Suspect]
     Active Substance: INFLIXIMAB-DYYB
     Dosage: 5 MG/KG, EVERY 6 WEEK
     Route: 042
     Dates: start: 20240822
  5. ANODAN-HC [Concomitant]
     Dosage: 10 MG (SUP)
  6. CALCIUM [Concomitant]
     Active Substance: CALCIUM
     Dosage: 500 MG
  7. EUROFER IRON [Concomitant]
     Dosage: 300 MG
  8. ISOSOURCE FIBRE 1.5 [Concomitant]
     Dosage: 375 ML
  9. LACTULOSE [Concomitant]
     Active Substance: LACTULOSE
     Dosage: 30 ML
  10. LEVETIRACETAM/SANDOZ [Concomitant]
     Dosage: 500 MG
  11. RISPERIDONE [Concomitant]
     Active Substance: RISPERIDONE
     Dosage: 1 DF
  12. PREVACID [Concomitant]
     Active Substance: LANSOPRAZOLE
     Dosage: 30 MG
  13. ROSUVASTATIN [Concomitant]
     Active Substance: ROSUVASTATIN
     Dosage: 10 MG
  14. RISPERIDONE [Concomitant]
     Active Substance: RISPERIDONE
     Dosage: 0.5 MG (1 DOSAGE FORM)
  15. POLYETHYLENE GLYCOL 3350 [Concomitant]
     Active Substance: POLYETHYLENE GLYCOL 3350
     Dosage: 17 G
  16. SENOKOT [Concomitant]
     Active Substance: SENNOSIDES
     Dosage: 8.6 MG (1 DOSAGE FORM)
  17. DIMETHICONE [Concomitant]
     Active Substance: DIMETHICONE
     Dosage: 1 DF, SKIN CREAM
  18. SYSTANE (HYPROMELLOSE 2910 (4000 MPA.S)) [Concomitant]
     Active Substance: HYPROMELLOSE 2910 (4000 MPA.S)
     Dosage: 1 DF
  19. TARO CARBAMAZEPINE [Concomitant]
     Dosage: 100 MG (IR)
  20. TYLENOL [Concomitant]
     Active Substance: ACETAMINOPHEN
     Dosage: 325 MG
  21. VITAMIN D3 [Concomitant]
     Active Substance: CHOLECALCIFEROL
     Dosage: 1000 IU

REACTIONS (11)
  - Aspiration [Fatal]
  - Abdominal distension [Not Recovered/Not Resolved]
  - Abdominal pain [Unknown]
  - Constipation [Unknown]
  - Body temperature abnormal [Not Recovered/Not Resolved]
  - Lower respiratory tract infection [Recovered/Resolved]
  - Clostridium difficile infection [Recovered/Resolved]
  - Pneumonia [Recovering/Resolving]
  - Vomiting [Unknown]
  - Nasal congestion [Unknown]
  - Influenza [Recovered/Resolved]

NARRATIVE: CASE EVENT DATE: 20240101
